FAERS Safety Report 6304364-3 (Version None)
Quarter: 2009Q3

REPORT INFORMATION
  Report Type: 
  Country: None (occurrence: None)
  Receive Date: 20090811
  Receipt Date: 20090807
  Transmission Date: 20100115
  Serious: Yes (Death, Hospitalization, Other)
  Sender: FDA-Public Use
  Company Number: DK-BAYER-200926781GPV

PATIENT
  Age: 76 Year
  Sex: Female
  Weight: 63 kg

DRUGS (3)
  1. CAMPATH [Suspect]
     Indication: CHRONIC LYMPHOCYTIC LEUKAEMIA
     Dosage: UNIT DOSE: 30 MG
     Route: 058
  2. FLUDARABINE PHOSPHATE [Suspect]
     Indication: CHRONIC LYMPHOCYTIC LEUKAEMIA
     Dosage: CYCLES EVERY 4 WEEKS WITH 3 TREATMENT DAYS PER CYCLE, ARM B
     Route: 048
  3. CYCLOPHOSPHAMIDE [Suspect]
     Indication: CHRONIC LYMPHOCYTIC LEUKAEMIA
     Dosage: CYCLES EVERY 4 WEEKS WITH 3 TREATMENT DAYS PER CYCLE, ARM B
     Route: 048

REACTIONS (1)
  - COLON CANCER METASTATIC [None]
